FAERS Safety Report 19970991 (Version 1)
Quarter: 2021Q4

REPORT INFORMATION
  Report Type: Spontaneous
  Country: FR (occurrence: FR)
  Receive Date: 20211020
  Receipt Date: 20211020
  Transmission Date: 20220303
  Serious: Yes (Hospitalization)
  Sender: FDA-Public Use
  Company Number: FR-JNJFOC-20211010955

PATIENT
  Age: 60 Year
  Sex: Male

DRUGS (4)
  1. BACTRIM [Suspect]
     Active Substance: SULFAMETHOXAZOLE\TRIMETHOPRIM
     Indication: Product used for unknown indication
     Route: 065
  2. REMICADE [Suspect]
     Active Substance: INFLIXIMAB
     Indication: Crohn^s disease
     Dosage: MOST RECENT DOSE PRIOR TO AE 05/AUG/2021
     Route: 042
     Dates: start: 20210427
  3. AZATHIOPRINE [Suspect]
     Active Substance: AZATHIOPRINE
     Indication: Crohn^s disease
     Dosage: MOST RECENT DOSE PRIOR TO AE 23/AUG/2021
     Route: 065
     Dates: start: 20210419
  4. VALGANCICLOVIR HYDROCHLORIDE [Suspect]
     Active Substance: VALGANCICLOVIR HYDROCHLORIDE
     Indication: Antiviral prophylaxis
     Dosage: MOST RECENT DOSE PRIOR TO AE 21/AUG/2021
     Route: 065
     Dates: start: 202009

REACTIONS (1)
  - Pancytopenia [Unknown]

NARRATIVE: CASE EVENT DATE: 20210821
